FAERS Safety Report 7574592-8 (Version None)
Quarter: 2011Q2

REPORT INFORMATION
  Report Type: 
  Country: None (occurrence: None)
  Receive Date: 20110627
  Receipt Date: 20100319
  Transmission Date: 20111010
  Serious: Yes (Death, Other)
  Sender: FDA-Public Use
  Company Number: US-BAYER-201016721NA

PATIENT
  Age: 56 Year
  Sex: Female
  Weight: 39.909 kg

DRUGS (10)
  1. LASIX [Concomitant]
     Dosage: 40 MG, BID
     Route: 048
  2. HYDROCHLOROTHIAZIDE [Concomitant]
     Dosage: 25 MG, QD
     Route: 048
  3. CEFAZOLIN [Concomitant]
     Dosage: 1 G, UNK
     Route: 042
     Dates: start: 20000828, end: 20000828
  4. LANOXIN [Concomitant]
     Dosage: 0.625 MG, QD
     Route: 048
  5. HEPARIN [Concomitant]
     Dosage: 10000 UNITS
     Route: 042
     Dates: start: 20000828, end: 20000828
  6. VASOTEC [Concomitant]
     Dosage: 5 MG, BID
     Route: 048
  7. COUMADIN [Concomitant]
     Dosage: 5 MG, QD
     Route: 048
  8. FENTANYL [Concomitant]
     Dosage: 500 ?G, UNK
     Route: 042
     Dates: start: 20000828, end: 20000828
  9. MILRINONE [Concomitant]
     Dosage: 2988 MG, UNK
     Route: 042
     Dates: start: 20000828, end: 20000828
  10. TRASYLOL [Suspect]
     Indication: PULMONARY VALVE REPLACEMENT
     Dosage: 100 ML, UNK
     Dates: start: 20000828, end: 20000828

REACTIONS (9)
  - STRESS [None]
  - ANHEDONIA [None]
  - ANXIETY [None]
  - DEATH [None]
  - RENAL FAILURE [None]
  - UNEVALUABLE EVENT [None]
  - PAIN [None]
  - FEAR [None]
  - EMOTIONAL DISTRESS [None]
